FAERS Safety Report 6312559-8 (Version None)
Quarter: 2009Q3

REPORT INFORMATION
  Report Type: 
  Country: None (occurrence: None)
  Receive Date: 20090817
  Receipt Date: 20090504
  Transmission Date: 20100115
  Serious: No
  Sender: FDA-Public Use
  Company Number: US-ALLERGAN-0906131US

PATIENT
  Age: 80 Year
  Sex: Female

DRUGS (1)
  1. SANCTURA XR [Suspect]
     Indication: HYPERTONIC BLADDER
     Dosage: 60 MG, QAM
     Route: 048
     Dates: end: 20090427

REACTIONS (6)
  - AGEUSIA [None]
  - CONSTIPATION [None]
  - DIZZINESS [None]
  - MASTICATION DISORDER [None]
  - TONGUE DISORDER [None]
  - WEIGHT DECREASED [None]
